FAERS Safety Report 11001019 (Version 1)
Quarter: 2015Q2

REPORT INFORMATION
  Report Type: Spontaneous
  Country: US (occurrence: US)
  Receive Date: 20150408
  Receipt Date: 20150408
  Transmission Date: 20150821
  Serious: No
  Sender: FDA-Public Use
  Company Number: US-SA-2014SA152437

PATIENT
  Age: 64 Year
  Sex: Male
  Weight: 93 kg

DRUGS (2)
  1. ALLEGRA [Suspect]
     Active Substance: FEXOFENADINE HYDROCHLORIDE
     Indication: HYPERSENSITIVITY
     Route: 048
     Dates: start: 20141028
  2. FLONASE [Suspect]
     Active Substance: FLUTICASONE PROPIONATE
     Route: 065
     Dates: start: 20141031

REACTIONS (2)
  - Feeling abnormal [Unknown]
  - Drug effect incomplete [Unknown]
